FAERS Safety Report 25989271 (Version 1)
Quarter: 2025Q4

REPORT INFORMATION
  Report Type: Report from Study
  Country: EU (occurrence: EU)
  Receive Date: 20251103
  Receipt Date: 20251103
  Transmission Date: 20260118
  Serious: Yes (Hospitalization, Other)
  Sender: NOVARTIS
  Company Number: EU-002147023-NVSC2025ES162641

PATIENT
  Age: 4 Year
  Sex: Male
  Weight: 19.6 kg

DRUGS (1)
  1. VIJOICE [Suspect]
     Active Substance: ALPELISIB
     Indication: PIK3CA related overgrowth spectrum
     Dosage: 50 MG
     Route: 048
     Dates: start: 20240315, end: 20250904

REACTIONS (3)
  - Pneumonia [Recovered/Resolved]
  - Hypoxia [Unknown]
  - Macrodactyly [Unknown]
